FAERS Safety Report 5233697-7 (Version None)
Quarter: 2007Q1

REPORT INFORMATION
  Report Type: 
  Country: None (occurrence: None)
  Receive Date: 20070208
  Receipt Date: 20070206
  Transmission Date: 20070707
  Serious: Yes (Other)
  Sender: FDA-Public Use
  Company Number: US-GLAXOSMITHKLINE-A0638581A

PATIENT
  Age: 49 Year
  Sex: Male

DRUGS (2)
  1. ADVAIR DISKUS 100/50 [Suspect]
     Indication: ASTHMA
     Route: 055
     Dates: start: 20061201
  2. ALBUTEROL [Suspect]
     Indication: ASTHMA
     Route: 055
     Dates: start: 20061201

REACTIONS (2)
  - ASTHMA [None]
  - BREATH ALCOHOL TEST POSITIVE [None]
